FAERS Safety Report 6021282-9 (Version None)
Quarter: 2008Q4

REPORT INFORMATION
  Report Type: 
  Country: None (occurrence: None)
  Receive Date: 20081229
  Receipt Date: 20081222
  Transmission Date: 20090506
  Serious: Yes (Hospitalization)
  Sender: FDA-Public Use
  Company Number: US-ASTRAZENECA-2008UW28505

PATIENT
  Age: 24434 Day
  Sex: Male

DRUGS (1)
  1. TOPROL-XL [Suspect]
     Route: 048
     Dates: start: 20081016

REACTIONS (3)
  - CHEST PAIN [None]
  - RESPIRATORY DISORDER [None]
  - STENT PLACEMENT [None]
